FAERS Safety Report 6187810-8 (Version None)
Quarter: 2009Q2

REPORT INFORMATION
  Report Type: 
  Country: None (occurrence: None)
  Receive Date: 20090513
  Receipt Date: 20090505
  Transmission Date: 20091009
  Serious: Yes (Other)
  Sender: FDA-Public Use
  Company Number: US-ELI_LILLY_AND_COMPANY-US200905001071

PATIENT
  Sex: Male

DRUGS (3)
  1. HUMULIN N [Suspect]
  2. METFORMIN HCL [Concomitant]
     Dates: start: 20040101
  3. LANTUS [Concomitant]

REACTIONS (2)
  - MALAISE [None]
  - PANCREATIC CARCINOMA [None]
